FAERS Safety Report 8085245-4 (Version None)
Quarter: 2012Q1

REPORT INFORMATION
  Report Type: 
  Country: None (occurrence: None)
  Receive Date: 20120128
  Receipt Date: 20110325
  Transmission Date: 20120608
  Serious: No
  Sender: FDA-Public Use
  Company Number: US-ABBOTT-11P-163-0714972-00

PATIENT
  Age: 37 Year
  Sex: Male

DRUGS (2)
  1. HUMIRA [Suspect]
     Indication: CROHN'S DISEASE
     Dates: start: 20101201
  2. ADDERALL ER [Concomitant]
     Indication: ATTENTION DEFICIT/HYPERACTIVITY DISORDER

REACTIONS (9)
  - SINUS OPERATION [None]
  - PAIN [None]
  - ROAD TRAFFIC ACCIDENT [None]
  - COUGH [None]
  - LYMPHADENOPATHY [None]
  - MUSCULOSKELETAL STIFFNESS [None]
  - CHEST PAIN [None]
  - OROPHARYNGEAL PAIN [None]
  - ANAL FISTULA [None]
